FAERS Safety Report 12524549 (Version 1)
Quarter: 2016Q3

REPORT INFORMATION
  Report Type: Spontaneous
  Country: US (occurrence: US)
  Receive Date: 20160704
  Receipt Date: 20160704
  Transmission Date: 20161109
  Serious: Yes (Other)
  Sender: FDA-Public Use
  Company Number: US-TEVA-672360USA

PATIENT
  Age: 66 Year
  Sex: Male

DRUGS (1)
  1. ETOPOSIDE. [Suspect]
     Active Substance: ETOPOSIDE
     Indication: SMALL CELL CARCINOMA
     Dosage: 20 MG/ML, 500 MG
     Dates: start: 20160621, end: 20160621

REACTIONS (3)
  - Pharyngeal oedema [Unknown]
  - Hot flush [Unknown]
  - Throat tightness [Unknown]

NARRATIVE: CASE EVENT DATE: 20160621
